FAERS Safety Report 7119727-6 (Version None)
Quarter: 2010Q4

REPORT INFORMATION
  Report Type: 
  Country: None (occurrence: None)
  Receive Date: 20101115
  Receipt Date: 20101108
  Transmission Date: 20110411
  Serious: Yes (Life-Threatening)
  Sender: FDA-Public Use
  Company Number: 2010MA004395

PATIENT
  Age: 83 Year
  Sex: Female

DRUGS (7)
  1. NAPROXEN [Suspect]
     Indication: MUSCULOSKELETAL CHEST PAIN
     Dosage: 500 MG;BID
     Dates: start: 20101020, end: 20101023
  2. PREGABALIN [Concomitant]
  3. MORPHINE [Concomitant]
  4. LANSOPRAZOLE [Concomitant]
  5. OXYCONTIN [Concomitant]
  6. PREGABALIN [Concomitant]
  7. OXYCODONE HCL [Concomitant]

REACTIONS (3)
  - DRUG TOXICITY [None]
  - LIVER FUNCTION TEST ABNORMAL [None]
  - RENAL FAILURE ACUTE [None]
